FAERS Safety Report 7423031-6 (Version None)
Quarter: 2011Q2

REPORT INFORMATION
  Report Type: 
  Country: None (occurrence: None)
  Receive Date: 20110419
  Receipt Date: 20110407
  Transmission Date: 20111010
  Serious: Yes (Other)
  Sender: FDA-Public Use
  Company Number: JP-PFIZER INC-2011083271

PATIENT
  Age: 54 Year
  Sex: Male
  Weight: 68 kg

DRUGS (2)
  1. CISPLATIN [Concomitant]
     Indication: SMALL CELL LUNG CANCER STAGE UNSPECIFIED
     Dosage: 110 MG /BODY (62.1 MG/M2)
     Route: 041
     Dates: start: 20110104, end: 20110208
  2. CAMPTOSAR [Suspect]
     Indication: SMALL CELL LUNG CANCER STAGE UNSPECIFIED
     Dosage: 110 MG/BODY(62.1 MG/M2)
     Route: 041
     Dates: start: 20110104, end: 20110222

REACTIONS (3)
  - HAEMOGLOBIN DECREASED [None]
  - PYOTHORAX [None]
  - NEUTROPENIA [None]
